FAERS Safety Report 18713312 (Version 1)
Quarter: 2021Q1

REPORT INFORMATION
  Report Type: Spontaneous
  Country: US (occurrence: US)
  Receive Date: 20210107
  Receipt Date: 20210107
  Transmission Date: 20210419
  Serious: No
  Sender: FDA-Public Use
  Company Number: US-BAUSCH-BL-2020-038364

PATIENT
  Age: 70 Year
  Sex: Female
  Weight: 56.7 kg

DRUGS (9)
  1. LOTEMAX [Suspect]
     Active Substance: LOTEPREDNOL ETABONATE
     Route: 065
     Dates: start: 20201106, end: 20201107
  2. PREDNISOLONE ACETATE. [Suspect]
     Active Substance: PREDNISOLONE ACETATE
     Indication: PRODUCT USED FOR UNKNOWN INDICATION
     Route: 065
     Dates: start: 20201119, end: 20201202
  3. PREDNISOLONE ACETATE. [Suspect]
     Active Substance: PREDNISOLONE ACETATE
     Route: 065
     Dates: start: 20201211, end: 20201214
  4. LOTEMAX [Suspect]
     Active Substance: LOTEPREDNOL ETABONATE
     Indication: OCULAR HYPERAEMIA
     Route: 065
     Dates: start: 20200926, end: 20201006
  5. PREDNISOLONE ACETATE. [Suspect]
     Active Substance: PREDNISOLONE ACETATE
     Route: 065
     Dates: start: 20201203, end: 20201206
  6. LOTEMAX [Suspect]
     Active Substance: LOTEPREDNOL ETABONATE
     Route: 065
     Dates: start: 20201108, end: 20201114
  7. PREDNISOLONE ACETATE. [Suspect]
     Active Substance: PREDNISOLONE ACETATE
     Route: 065
     Dates: start: 20201207, end: 20201210
  8. LOTEMAX [Suspect]
     Active Substance: LOTEPREDNOL ETABONATE
     Route: 065
     Dates: start: 20201103, end: 20201105
  9. LOTEMAX [Suspect]
     Active Substance: LOTEPREDNOL ETABONATE
     Route: 065
     Dates: start: 20201030, end: 20201102

REACTIONS (4)
  - Eye disorder [Not Recovered/Not Resolved]
  - Ocular hyperaemia [Not Recovered/Not Resolved]
  - Therapeutic product effect incomplete [Unknown]
  - Eye pruritus [Not Recovered/Not Resolved]
